FAERS Safety Report 7532521-7 (Version None)
Quarter: 2011Q2

REPORT INFORMATION
  Report Type: 
  Country: None (occurrence: None)
  Receive Date: 20110608
  Receipt Date: 20110526
  Transmission Date: 20111010
  Serious: Yes (Other)
  Sender: FDA-Public Use
  Company Number: PHHY2011US46319

PATIENT

DRUGS (12)
  1. LIPITOR [Concomitant]
     Indication: BLOOD CHOLESTEROL INCREASED
  2. EXTAVIA [Suspect]
     Dosage: UNK UKN, UNK
     Route: 058
  3. GABAPENTIN [Concomitant]
     Indication: PARAESTHESIA
     Dosage: 600 MG, UNK
     Dates: start: 20050428
  4. BACLOFEN [Concomitant]
     Indication: MUSCLE SPASTICITY
     Dosage: 20 MG, UNK
  5. PROVIGIL [Concomitant]
     Indication: FATIGUE
     Dosage: 100 MG, UNK
  6. EFFEXOR [Concomitant]
     Indication: DEPRESSION
     Dosage: 150 MG, UNK
     Dates: start: 20090212
  7. GABAPENTIN [Concomitant]
     Indication: BURNING SENSATION
  8. GLATIRAMER ACETATE [Concomitant]
     Dosage: UNK UKN, UNK
  9. MINOCYCLINE HCL [Concomitant]
     Indication: MALAISE
     Dosage: 200 MG, UNK
     Dates: start: 20090205
  10. NEXIUM [Concomitant]
     Indication: GASTROOESOPHAGEAL REFLUX DISEASE
     Dosage: 40 MG, UNK
  11. INTERFERON BETA-1A [Concomitant]
     Dosage: UNK UKN, UNK
  12. TYSABRI [Concomitant]
     Indication: MULTIPLE SCLEROSIS
     Dosage: 30 MG, UNK
     Dates: start: 20100608

REACTIONS (1)
  - SINUSITIS [None]
